FAERS Safety Report 13046384 (Version 2)
Quarter: 2016Q4

REPORT INFORMATION
  Report Type: Report from Study
  Country: BR (occurrence: BR)
  Receive Date: 20161220
  Receipt Date: 20161230
  Transmission Date: 20170207
  Serious: Yes (Other)
  Sender: FDA-Public Use
  Company Number: PHHY2016BR174293

PATIENT
  Age: 75 Year
  Sex: Female
  Weight: 46 kg

DRUGS (6)
  1. CIPIDE [Concomitant]
     Indication: BLOOD CHOLESTEROL
     Dosage: 1 DF, QD (4 MONTHS AGO)
     Route: 048
  2. HEIMER [Concomitant]
     Active Substance: MEMANTINE HYDROCHLORIDE
     Indication: DEMENTIA ALZHEIMER^S TYPE
     Dosage: 2 DF, QD (5 YEARS AGO)
     Route: 048
     Dates: end: 20161227
  3. EXELON PATCH [Suspect]
     Active Substance: RIVASTIGMINE
     Indication: DEMENTIA ALZHEIMER^S TYPE
     Dosage: 4.6 MG, QD (PATCH 5 (CM2))
     Route: 062
     Dates: start: 201605
  4. PROLOPA [Concomitant]
     Active Substance: BENSERAZIDE\LEVODOPA
     Dosage: 0.5 DF, QD (4 MONTHS AGO)
     Route: 048
  5. PROLOPA [Concomitant]
     Active Substance: BENSERAZIDE\LEVODOPA
     Indication: PARKINSON^S DISEASE
     Dosage: 0.25 DF (200 MG), SHE USED QUARTER OF THE TABLET
     Route: 048
  6. EXODUS [Concomitant]
     Active Substance: ESCITALOPRAM OXALATE
     Indication: DEPRESSION
     Dosage: 1 DF, QD (5 YEARS AGO)
     Route: 048

REACTIONS (11)
  - Abnormal behaviour [Not Recovered/Not Resolved]
  - Restlessness [Not Recovered/Not Resolved]
  - Mass [Recovering/Resolving]
  - Erythema [Recovering/Resolving]
  - Suicidal ideation [Unknown]
  - Agitation [Not Recovered/Not Resolved]
  - Drug ineffective [Unknown]
  - Skin irritation [Recovering/Resolving]
  - Nervousness [Unknown]
  - Weight increased [Unknown]
  - Disturbance in attention [Not Recovered/Not Resolved]
